FAERS Safety Report 7381798-X (Version None)
Quarter: 2011Q1

REPORT INFORMATION
  Report Type: 
  Country: None (occurrence: None)
  Receive Date: 20110329
  Receipt Date: 20110324
  Transmission Date: 20110831
  Serious: Yes (Other)
  Sender: FDA-Public Use
  Company Number: FR-TEVA-273176ISR

PATIENT
  Sex: Female

DRUGS (2)
  1. EUGYNON (ETHINYLESTRADIOL - LEVONORGESTREL) [Suspect]
     Indication: CONTRACEPTION
     Route: 048
  2. COPAXONE [Suspect]
     Indication: MULTIPLE SCLEROSIS
     Route: 058
     Dates: start: 20100830, end: 20101125

REACTIONS (1)
  - CYTOLYTIC HEPATITIS [None]
